FAERS Safety Report 8424186-7 (Version None)
Quarter: 2012Q2

REPORT INFORMATION
  Report Type: 
  Country: None (occurrence: None)
  Receive Date: 20120608
  Receipt Date: 20120125
  Transmission Date: 20120825
  Serious: No
  Sender: FDA-Public Use
  Company Number: US-ASTRAZENECA-2012SE05165

PATIENT
  Sex: Female

DRUGS (2)
  1. SEROQUEL [Suspect]
     Route: 048
  2. PULMICORT [Suspect]
     Route: 055

REACTIONS (3)
  - ABDOMINAL DISCOMFORT [None]
  - COELIAC DISEASE [None]
  - OFF LABEL USE [None]
